FAERS Safety Report 6667388-2 (Version None)
Quarter: 2010Q2

REPORT INFORMATION
  Report Type: 
  Country: None (occurrence: None)
  Receive Date: 20100401
  Receipt Date: 20100329
  Transmission Date: 20101027
  Serious: Yes (Hospitalization)
  Sender: FDA-Public Use
  Company Number: 2010SP018620

PATIENT
  Age: 18 Year
  Sex: Male

DRUGS (2)
  1. TEMOZOLOMIDE [Suspect]
     Indication: MEDULLOBLASTOMA RECURRENT
     Dosage: 180 MG/M2;QD;PO
     Route: 048
     Dates: start: 20091207, end: 20091211
  2. ABT-888 [Suspect]
     Indication: MEDULLOBLASTOMA RECURRENT
     Dosage: 15 MG/M2;BID;PO
     Route: 048
     Dates: start: 20091207, end: 20091211

REACTIONS (1)
  - SIALOADENITIS [None]
